FAERS Safety Report 8787937 (Version 1)
Quarter: 2012Q4

REPORT INFORMATION
  Report Type: 
  Country: US (occurrence: US)
  Receive Date: 20120914
  Receipt Date: 20120914
  Transmission Date: 20130627
  Serious: No
  Sender: FDA-Public Use
  Company Number: US-VERTEX PHARMACEUTICAL INC.-AE-2012-005606

PATIENT
  Age: 48 Year
  Sex: Female
  Weight: 102.27 kg

DRUGS (13)
  1. INCIVEK [Suspect]
     Indication: HEPATITIS C
     Route: 048
     Dates: start: 20120412
  2. PEGASYS [Concomitant]
     Indication: HEPATITIS C
     Route: 058
     Dates: start: 20120412
  3. RIBAPAK [Concomitant]
     Indication: HEPATITIS C
     Route: 048
     Dates: start: 20120412
  4. PRAZOSIN [Concomitant]
     Route: 048
  5. HYDROXYZINE [Concomitant]
     Indication: PRURITUS
     Route: 048
  6. LISINOPRIL [Concomitant]
     Route: 048
  7. PRENATAL VITAMIN [Concomitant]
     Route: 048
  8. VITAMIN D [Concomitant]
     Route: 048
  9. PRISTIQ [Concomitant]
     Route: 048
  10. DIAZEPAM [Concomitant]
     Route: 048
  11. OXCARBAZEPINE [Concomitant]
     Route: 048
  12. SYMBICORT [Concomitant]
     Indication: CHRONIC OBSTRUCTIVE PULMONARY DISEASE
  13. LAMICTAL [Concomitant]
     Route: 048

REACTIONS (3)
  - Fungal infection [Unknown]
  - Rash [Recovered/Resolved]
  - Haemorrhoids [Recovered/Resolved]
